FAERS Safety Report 16706401 (Version 1)
Quarter: 2019Q3

REPORT INFORMATION
  Report Type: Spontaneous
  Country: US (occurrence: US)
  Receive Date: 20190628
  Receipt Date: 20190628
  Transmission Date: 20191004
  Serious: No
  Sender: FDA-Public Use
  Company Number: None

PATIENT
  Age: 56 Year
  Sex: Male

DRUGS (1)
  1. SPRYCEL [Suspect]
     Active Substance: DASATINIB
     Dates: start: 20190603, end: 20190621

REACTIONS (11)
  - Pleural effusion [None]
  - Atrial fibrillation [None]
  - Weight decreased [None]
  - Pneumonia [None]
  - Headache [None]
  - Taste disorder [None]
  - Fluid retention [None]
  - Nausea [None]
  - Decreased appetite [None]
  - Pyrexia [None]
  - Chills [None]

NARRATIVE: CASE EVENT DATE: 20190617
